FAERS Safety Report 15515085 (Version 3)
Quarter: 2018Q4

REPORT INFORMATION
  Report Type: Spontaneous
  Country: US (occurrence: US)
  Receive Date: 20181017
  Receipt Date: 20181201
  Transmission Date: 20190205
  Serious: Yes (Other)
  Sender: FDA-Public Use
  Company Number: US-009507513-1810USA006704

PATIENT
  Sex: Female
  Weight: 88.44 kg

DRUGS (3)
  1. PEMETREXED DISODIUM [Suspect]
     Active Substance: PEMETREXED DISODIUM
     Dosage: UNK
  2. KEYTRUDA [Suspect]
     Active Substance: PEMBROLIZUMAB
     Indication: NON-SMALL CELL LUNG CANCER
     Dosage: 200MG EVERY 3 WEEKS
     Route: 042
     Dates: start: 20170620, end: 20180914
  3. CARBOPLATIN. [Suspect]
     Active Substance: CARBOPLATIN
     Dosage: UNK

REACTIONS (3)
  - Gastrointestinal disorder [Not Recovered/Not Resolved]
  - Pneumonia [Unknown]
  - Crohn^s disease [Recovering/Resolving]
